FAERS Safety Report 9365380 (Version 2)
Quarter: 2013Q3

REPORT INFORMATION
  Report Type: Spontaneous
  Country: ZA (occurrence: ZA)
  Receive Date: 20130625
  Receipt Date: 20130722
  Transmission Date: 20140515
  Serious: Yes (Hospitalization)
  Sender: FDA-Public Use
  Company Number: ZA-009507513-1306ZAF010022

PATIENT
  Age: 14 Month
  Sex: Female

DRUGS (2)
  1. MONTE-AIR [Suspect]
     Route: 048
  2. SINGULAIR [Suspect]
     Route: 048

REACTIONS (7)
  - Bronchitis [Recovered/Resolved]
  - Cough [Recovered/Resolved]
  - General physical health deterioration [Recovered/Resolved]
  - Increased upper airway secretion [Recovered/Resolved]
  - Pyrexia [Recovered/Resolved]
  - Malaise [Recovered/Resolved]
  - Drug ineffective [Unknown]
